FAERS Safety Report 23618430 (Version 1)
Quarter: 2024Q1

REPORT INFORMATION
  Report Type: Report from Study
  Country: US (occurrence: US)
  Receive Date: 20240311
  Receipt Date: 20240311
  Transmission Date: 20240410
  Serious: Yes (Death, Hospitalization)
  Sender: FDA-Public Use
  Company Number: US-MIRATI-MT2024PM06163

PATIENT
  Sex: Male

DRUGS (3)
  1. KRAZATI [Suspect]
     Active Substance: ADAGRASIB
     Indication: Lung neoplasm malignant
     Dosage: 200 MG, BID
     Route: 048
     Dates: start: 20230828, end: 20230830
  2. KRAZATI [Suspect]
     Active Substance: ADAGRASIB
     Dosage: 200 MG, BID
     Route: 048
     Dates: start: 20231110, end: 20231116
  3. KRAZATI [Suspect]
     Active Substance: ADAGRASIB
     Dosage: 200 MG, BID
     Route: 048
     Dates: start: 20231209, end: 202403

REACTIONS (2)
  - Death [Fatal]
  - Hospitalisation [Unknown]

NARRATIVE: CASE EVENT DATE: 20240101
